FAERS Safety Report 9659642 (Version 1)
Quarter: 2013Q4

REPORT INFORMATION
  Report Type: Spontaneous
  Country: US (occurrence: US)
  Receive Date: 20131031
  Receipt Date: 20131031
  Transmission Date: 20140711
  Serious: No
  Sender: FDA-Public Use
  Company Number: US-009507513-1310USA014934

PATIENT
  Sex: Male

DRUGS (1)
  1. MIRALAX [Suspect]
     Indication: RECTAL CANCER
     Dosage: UNK, UNKNOWN
     Route: 048

REACTIONS (2)
  - Product label issue [Unknown]
  - Off label use [Unknown]
